FAERS Safety Report 10426117 (Version 1)
Quarter: 2014Q1

REPORT INFORMATION
  Report Type: Spontaneous
  Country: US (occurrence: None)
  Receive Date: 20130314
  Receipt Date: 20130314
  Transmission Date: 20141002
  Serious: No
  Sender: FDA-Public Use
  Company Number: 1302USA007502

PATIENT
  Sex: Female

DRUGS (1)
  1. VICTRELIS (BOCEPREVIR) CAPSULES [Suspect]
     Indication: HEPATITIS C
     Route: 048

REACTIONS (1)
  - Rash [None]
